FAERS Safety Report 10488640 (Version 1)
Quarter: 2014Q4

REPORT INFORMATION
  Report Type: Spontaneous
  Country: GB (occurrence: GB)
  Receive Date: 20141002
  Receipt Date: 20141002
  Transmission Date: 20150528
  Serious: Yes (Hospitalization)
  Sender: FDA-Public Use
  Company Number: GB-TEVA-511091ISR

PATIENT
  Age: 65 Year
  Sex: Male
  Weight: 78.6 kg

DRUGS (4)
  1. EPIRUBICIN [Suspect]
     Active Substance: EPIRUBICIN
     Indication: GASTRIC CANCER
     Dosage: LAST DOSE BEFORE EVENT: 08/NOV/2013
     Route: 042
     Dates: start: 20130927
  2. XELODA [Suspect]
     Active Substance: CAPECITABINE
     Indication: GASTRIC CANCER
     Dosage: LAST DOSE BEFORE EVENT ON 19/NOV/2013
     Route: 048
     Dates: start: 20131108
  3. CISPLATIN. [Suspect]
     Active Substance: CISPLATIN
     Indication: GASTRIC CANCER
     Dosage: LAST DOSE BEFORE EVENT: 08/NOV/2013
     Route: 042
     Dates: start: 20130927
  4. AVASTIN [Suspect]
     Active Substance: BEVACIZUMAB
     Indication: GASTRIC CANCER
     Dosage: LAST DOSE ADMINISTERED BEFORE EVENT: 27/SEP/2013
     Route: 042
     Dates: start: 20130927

REACTIONS (1)
  - Gastrointestinal pain [Recovered/Resolved]

NARRATIVE: CASE EVENT DATE: 20131130
